FAERS Safety Report 15943578 (Version 2)
Quarter: 2019Q1

REPORT INFORMATION
  Report Type: Report from Study
  Country: DE (occurrence: DE)
  Receive Date: 20190210
  Receipt Date: 20190218
  Transmission Date: 20190417
  Serious: Yes (Life-Threatening, Hospitalization, Other)
  Sender: FDA-Public Use
  Company Number: PHHY2018DE002402

PATIENT
  Age: 56 Year
  Sex: Female
  Weight: 65 kg

DRUGS (19)
  1. ENTRESTO [Suspect]
     Active Substance: SACUBITRIL\VALSARTAN
     Indication: LEFT VENTRICULAR FAILURE
     Dosage: 1 DF (SACUBITRIL 98 MG/ VALSARTAN 102 MG), UNK
     Route: 048
     Dates: start: 20171103
  2. ENTRESTO [Suspect]
     Active Substance: SACUBITRIL\VALSARTAN
     Indication: CARDIAC FAILURE
     Dosage: 1 DF (SACUBITRIL 49 MG/ VALSARTAN 51 MG), UNK
     Route: 048
     Dates: start: 20171109
  3. BERLTHYROX [Concomitant]
     Indication: PRODUCT USED FOR UNKNOWN INDICATION
     Dosage: 1 DF, UNK (125/ 150 UG, DAILY IN ALTERNATION)
     Route: 065
  4. RIVAROXABAN [Concomitant]
     Active Substance: RIVAROXABAN
     Indication: VENOUS THROMBOSIS
     Dosage: 20 MG, UNK
     Route: 048
     Dates: start: 20180507
  5. IBUPROFEN. [Concomitant]
     Active Substance: IBUPROFEN
     Indication: PRODUCT USED FOR UNKNOWN INDICATION
     Dosage: 600 MG, TID
     Route: 065
  6. ATORVASTATIN [Concomitant]
     Active Substance: ATORVASTATIN
     Indication: HYPERLIPIDAEMIA
     Dosage: 20 MG, UNK
     Route: 048
     Dates: start: 20160302
  7. ENTRESTO [Suspect]
     Active Substance: SACUBITRIL\VALSARTAN
     Dosage: 1 DF (SACUBITRIL 49 MG/ VALSARTAN 51 MG), UNK
     Route: 048
     Dates: start: 20180610, end: 20180610
  8. LIPROLOG [Concomitant]
     Active Substance: INSULIN LISPRO
     Dosage: ACCORDING TO BLOOD SUGAR
     Route: 058
     Dates: start: 2013
  9. TORASEMIDE [Concomitant]
     Active Substance: TORSEMIDE
     Dosage: 5 MG, UNK
     Route: 048
     Dates: start: 2016
  10. FERROSANOL [Concomitant]
     Active Substance: FERROUS GLUCONATE
     Indication: PRODUCT USED FOR UNKNOWN INDICATION
     Dosage: UNK QD, (1-0-0)
     Route: 065
  11. ATORVASTATIN [Concomitant]
     Active Substance: ATORVASTATIN
     Dosage: 40 MG, UNK (0-0-1 1/2)
     Route: 048
     Dates: start: 20160302
  12. VITAMIN B COMPLEX [Concomitant]
     Active Substance: CYANOCOBALAMIN\DEXPANTHENOL\NIACINAMIDE\PYRIDOXINE HYDROCHLORIDE\RIBOFLAVIN 5^-PHOSPHATE SODIUM\THIAMINE HYDROCHLORIDE\VITAMIN B COMPLEX
     Indication: PRODUCT USED FOR UNKNOWN INDICATION
     Dosage: UNK (1-1-1)
     Route: 065
  13. MAGNESIUM VERLA [Concomitant]
     Active Substance: MAGNESIUM
     Indication: PRODUCT USED FOR UNKNOWN INDICATION
     Dosage: UNK (2-0-0)
     Route: 065
  14. LIPROLOG [Concomitant]
     Active Substance: INSULIN LISPRO
     Indication: TYPE 1 DIABETES MELLITUS
     Dosage: UNK, PRN
     Route: 058
     Dates: start: 20120625
  15. TORASEMIDE [Concomitant]
     Active Substance: TORSEMIDE
     Indication: CARDIAC FAILURE
     Dosage: 10 MG, UNK (0-1/2-0)
     Route: 048
     Dates: start: 20150603
  16. PANTOPRAZOLE [Concomitant]
     Active Substance: PANTOPRAZOLE
     Indication: PRODUCT USED FOR UNKNOWN INDICATION
     Dosage: 40 MG, QD (1-0-0)
     Route: 065
  17. PREGABALIN. [Concomitant]
     Active Substance: PREGABALIN
     Indication: DIABETIC NEUROPATHY
     Dosage: 50 MG, UNK (1-0-3)
     Route: 048
     Dates: start: 20180420
  18. ACETYLSALICYLIC ACID [Concomitant]
     Active Substance: ASPIRIN
     Indication: PRODUCT USED FOR UNKNOWN INDICATION
     Dosage: 100 MG, QD (1-0-0)
     Route: 065
  19. NOVAMINSULFON [Concomitant]
     Active Substance: METAMIZOLE
     Indication: PRODUCT USED FOR UNKNOWN INDICATION
     Dosage: 500 MG, BID (1-0-1)
     Route: 065

REACTIONS (11)
  - Erythema [Recovered/Resolved]
  - Deep vein thrombosis [Recovered/Resolved]
  - Foot deformity [Unknown]
  - Breast cancer [Not Recovered/Not Resolved]
  - Necrotising fasciitis [Recovered/Resolved with Sequelae]
  - Device related infection [Recovered/Resolved]
  - Wound sepsis [Recovering/Resolving]
  - Polyneuropathy [Unknown]
  - Necrotising fasciitis [Recovered/Resolved]
  - Metastases to lymph nodes [Recovered/Resolved]
  - Neuralgia [Unknown]

NARRATIVE: CASE EVENT DATE: 20180410
